FAERS Safety Report 6528458-2 (Version None)
Quarter: 2010Q1

REPORT INFORMATION
  Report Type: 
  Country: None (occurrence: None)
  Receive Date: 20100106
  Receipt Date: 20091231
  Transmission Date: 20100710
  Serious: Yes (Other)
  Sender: FDA-Public Use
  Company Number: B0622071A

PATIENT
  Sex: Male
  Weight: 105 kg

DRUGS (5)
  1. LAMICTAL [Suspect]
     Indication: EPILEPSY
     Route: 048
     Dates: start: 20010601
  2. LAMISIL [Suspect]
     Dosage: 250MG TWICE PER DAY
     Route: 048
     Dates: start: 20090801, end: 20090101
  3. PREVISCAN [Concomitant]
     Dosage: .75UNIT PER DAY
     Route: 048
  4. URBANYL [Concomitant]
     Indication: EPILEPSY
     Dosage: 20MG PER DAY
     Route: 048
  5. FENOFIBRATE [Concomitant]
     Route: 048

REACTIONS (4)
  - DRUG DISPENSING ERROR [None]
  - DRUG NAME CONFUSION [None]
  - EPILEPSY [None]
  - MEDICATION ERROR [None]
